FAERS Safety Report 7088082-2 (Version None)
Quarter: 2010Q4

REPORT INFORMATION
  Report Type: 
  Country: None (occurrence: None)
  Receive Date: 20101108
  Receipt Date: 20101029
  Transmission Date: 20110411
  Serious: No
  Sender: FDA-Public Use
  Company Number: US-B.I. PHARMACEUTICALS,INC./RIDGEFIELD-2010-BP-12191BP

PATIENT
  Sex: Male

DRUGS (2)
  1. FLOMAX [Suspect]
     Indication: BENIGN PROSTATIC HYPERPLASIA
     Dosage: 0.4 MG
     Route: 048
     Dates: start: 20100401
  2. MEDICATIONS NOT FURTHER SPECIFIED [Concomitant]

REACTIONS (4)
  - LIP SWELLING [None]
  - ORAL PAIN [None]
  - STOMATITIS [None]
  - SWOLLEN TONGUE [None]
